FAERS Safety Report 9501276 (Version 2)
Quarter: 2013Q3

REPORT INFORMATION
  Report Type: Report from Study
  Country: JP (occurrence: JP)
  Receive Date: 20130905
  Receipt Date: 20130926
  Transmission Date: 20140515
  Serious: Yes (Hospitalization)
  Sender: FDA-Public Use
  Company Number: JP-ACTELION-A-CH2013-87997

PATIENT
  Age: 83 Year
  Sex: Female

DRUGS (6)
  1. TRACLEER [Suspect]
     Indication: PULMONARY ARTERIAL HYPERTENSION
     Dosage: 62.5 MG, BID
     Route: 048
     Dates: start: 20120124, end: 20120131
  2. CILOSTAZOL [Suspect]
     Indication: PERIPHERAL ARTERIAL OCCLUSIVE DISEASE
     Dosage: 200 MG, QD
     Route: 048
     Dates: end: 20120131
  3. CANDESARTAN CILEXETIL [Suspect]
     Indication: CARDIAC FAILURE
     Dosage: 2 MG, QD
     Route: 048
     Dates: end: 20120131
  4. FUROSEMIDE [Concomitant]
  5. ASPIRIN [Concomitant]
  6. SARPOGRELATE HYDROCHLORIDE [Concomitant]

REACTIONS (3)
  - Renal failure acute [Recovered/Resolved]
  - Hypotension [Recovered/Resolved]
  - Blood creatinine increased [Recovered/Resolved]
